FAERS Safety Report 6096267-7 (Version None)
Quarter: 2009Q1

REPORT INFORMATION
  Report Type: 
  Country: None (occurrence: None)
  Receive Date: 20090227
  Receipt Date: 20081024
  Transmission Date: 20090719
  Serious: No
  Sender: FDA-Public Use
  Company Number: A0753503A

PATIENT
  Sex: Female

DRUGS (5)
  1. LAMICTAL [Suspect]
     Indication: BIPOLAR DISORDER
     Dosage: 200MG PER DAY
     Route: 048
  2. SEROQUEL [Concomitant]
  3. ARICEPT [Concomitant]
  4. UNKNOWN MEDICATION [Concomitant]
  5. ABILIFY [Concomitant]

REACTIONS (2)
  - CONTUSION [None]
  - PAIN IN EXTREMITY [None]
